FAERS Safety Report 7497733-X (Version None)
Quarter: 2011Q2

REPORT INFORMATION
  Report Type: 
  Country: None (occurrence: None)
  Receive Date: 20110523
  Receipt Date: 20110512
  Transmission Date: 20111010
  Serious: Yes (Other)
  Sender: FDA-Public Use
  Company Number: GB-BAUSCH-2011BL003222

PATIENT
  Age: 28 Year
  Sex: Female

DRUGS (5)
  1. ORAL CONTRACEPTIVE NOS [Concomitant]
  2. OXYTETRACYCLINE [Concomitant]
     Route: 048
  3. PREDNISOLONE [Suspect]
     Indication: ROSACEA
  4. ERYTHROMYCIN [Concomitant]
  5. PREDNISOLONE [Suspect]

REACTIONS (3)
  - INTRA-UTERINE DEATH [None]
  - OLIGOHYDRAMNIOS [None]
  - GESTATIONAL DIABETES [None]
